FAERS Safety Report 7591208-5 (Version None)
Quarter: 2011Q3

REPORT INFORMATION
  Report Type: 
  Country: None (occurrence: None)
  Receive Date: 20110706
  Receipt Date: 20110628
  Transmission Date: 20111222
  Serious: Yes (Death, Hospitalization)
  Sender: FDA-Public Use
  Company Number: US-BIOGENIDEC-2011BI013680

PATIENT
  Age: 55 Year
  Sex: Male

DRUGS (1)
  1. TYSABRI [Suspect]
     Indication: MULTIPLE SCLEROSIS
     Route: 042
     Dates: start: 20080306, end: 20110128

REACTIONS (7)
  - INFECTION [None]
  - STAPHYLOCOCCAL INFECTION [None]
  - PAIN [None]
  - PNEUMONIA [None]
  - DEVICE RELATED INFECTION [None]
  - DRUG DELIVERY DEVICE IMPLANTATION [None]
  - MEDICAL DEVICE COMPLICATION [None]
